FAERS Safety Report 13144758 (Version 1)
Quarter: 2017Q1

REPORT INFORMATION
  Report Type: Spontaneous
  Country: GB (occurrence: GB)
  Receive Date: 20170124
  Receipt Date: 20170124
  Transmission Date: 20170428
  Serious: Yes (Hospitalization, Other)
  Sender: FDA-Public Use
  Company Number: GB-ACCORD-047511

PATIENT
  Age: 73 Year
  Sex: Female
  Weight: 73.8 kg

DRUGS (7)
  1. ZYDELIG [Suspect]
     Active Substance: IDELALISIB
     Indication: CHRONIC LYMPHOCYTIC LEUKAEMIA
     Dosage: ALSO RECEIVED 100 MG ON 09-MAR-2016, 150 MG 04-MAY-2016 TO 18-SEP-2016, AND 50 % DOSE ON 10-SEP-2016
     Route: 048
     Dates: start: 20150804, end: 20160122
  2. COTRIMOXAZOLE [Concomitant]
     Active Substance: SULFAMETHOXAZOLE\TRIMETHOPRIM
  3. SIMVASTATIN. [Suspect]
     Active Substance: SIMVASTATIN
     Indication: BLOOD CHOLESTEROL INCREASED
     Dosage: 10 MG, QD
     Route: 048
     Dates: end: 20160122
  4. CALCIUM CARBONATE. [Concomitant]
     Active Substance: CALCIUM CARBONATE
     Indication: THYROIDECTOMY
  5. LEVOTHYROXINE. [Concomitant]
     Active Substance: LEVOTHYROXINE
  6. ACICLOVIR [Concomitant]
     Active Substance: ACYCLOVIR
  7. ALFACALCIDOL [Concomitant]
     Active Substance: ALFACALCIDOL

REACTIONS (6)
  - Weight decreased [Unknown]
  - Large intestine polyp [Unknown]
  - Diverticulum [Unknown]
  - Lymph node palpable [Unknown]
  - Diarrhoea [Recovered/Resolved]
  - Night sweats [Unknown]

NARRATIVE: CASE EVENT DATE: 20160117
